FAERS Safety Report 4825667-5 (Version None)
Quarter: 2005Q4

REPORT INFORMATION
  Report Type: 
  Country: None (occurrence: None)
  Receive Date: 20051111
  Receipt Date: 20051031
  Transmission Date: 20060501
  Serious: Yes (Other)
  Sender: FDA-Public Use
  Company Number: JP-SOLVAY-00305003694

PATIENT
  Age: 54 Year
  Sex: Female

DRUGS (3)
  1. SULPIRIDE [Concomitant]
     Indication: DEPRESSION
     Dosage: DAILY DOSE: 150 MILLIGRAM(S)
     Route: 048
  2. LUVOX [Suspect]
     Indication: DEPRESSION
     Dosage: DAILY DOSE: 100 MILLIGRAM(S)
     Route: 048
  3. BROTIZOLAM [Concomitant]
     Indication: SLEEP DISORDER
     Dosage: DAILY DOSE: .25 MILLIGRAM(S)
     Route: 048

REACTIONS (3)
  - DRUG WITHDRAWAL SYNDROME [None]
  - HYPOMANIA [None]
  - NEUTROPENIA [None]
